FAERS Safety Report 4661174-0 (Version None)
Quarter: 2005Q2

REPORT INFORMATION
  Report Type: 
  Country: None (occurrence: None)
  Receive Date: 20050425
  Receipt Date: 20050223
  Transmission Date: 20051028
  Serious: No
  Sender: FDA-Public Use
  Company Number: US116237

PATIENT
  Sex: Male

DRUGS (2)
  1. SENSIPAR [Suspect]
     Indication: HYPERPARATHYROIDISM SECONDARY
     Dates: start: 20040801
  2. ERGOCALCIFEROL [Concomitant]

REACTIONS (1)
  - BLOOD PARATHYROID HORMONE INCREASED [None]
